FAERS Safety Report 9916019 (Version 1)
Quarter: 2014Q1

REPORT INFORMATION
  Report Type: Spontaneous
  Country: US (occurrence: None)
  Receive Date: 20140220
  Receipt Date: 20140220
  Transmission Date: 20141002
  Serious: Yes (Life-Threatening)
  Sender: FDA-Public Use
  Company Number: None

PATIENT
  Sex: Male

DRUGS (8)
  1. SUTENT [Suspect]
     Dosage: 14 OFF
     Route: 048
     Dates: start: 20130227
  2. LISINOPRIL [Concomitant]
  3. PROPAFENONE [Concomitant]
  4. TESTOSTERONE [Concomitant]
  5. PREDNISONE [Concomitant]
  6. LEVOXYL [Concomitant]
  7. CITALOPARM [Concomitant]
  8. NOVOLOG [Concomitant]

REACTIONS (2)
  - Cerebrovascular accident [None]
  - Cerebral haemorrhage [None]
